FAERS Safety Report 5659164-4 (Version None)
Quarter: 2008Q1

REPORT INFORMATION
  Report Type: 
  Country: None (occurrence: None)
  Receive Date: 20080311
  Receipt Date: 20070604
  Transmission Date: 20080703
  Serious: No
  Sender: FDA-Public Use
  Company Number: US-BAYER-200711777BCC

PATIENT
  Age: 16 Year
  Sex: Female
  Weight: 59 kg

DRUGS (3)
  1. ALEVE [Suspect]
     Indication: DRUG USE FOR UNKNOWN INDICATION
     Dosage: TOTAL DAILY DOSE: 6600 MG  UNIT DOSE: 220 MG
     Route: 048
     Dates: start: 20070603
  2. RISPERDAL [Concomitant]
  3. LITHIUM CARBONATE [Concomitant]

REACTIONS (1)
  - OVERDOSE [None]
